APPROVED DRUG PRODUCT: REZUROCK
Active Ingredient: BELUMOSUDIL MESYLATE
Strength: EQ 200MG BASE
Dosage Form/Route: TABLET;ORAL
Application: N214783 | Product #001
Applicant: KADMON PHARMACEUTICALS LLC
Approved: Jul 16, 2021 | RLD: Yes | RS: Yes | Type: RX

PATENTS:
Patent 10183931 | Expires: Oct 7, 2033
Patent 10696660 | Expires: Oct 7, 2033
Patent 8357693 | Expires: Jun 20, 2034
Patent 12097202 | Expires: Jul 14, 2042
Patent 11311541 | Expires: Apr 9, 2035
Patent 10696660 | Expires: Oct 7, 2033
Patent 10183931 | Expires: Oct 7, 2033

EXCLUSIVITY:
Code: NCE | Date: Jul 16, 2026
Code: ODE-362 | Date: Jul 16, 2028